FAERS Safety Report 8127208-6 (Version None)
Quarter: 2012Q1

REPORT INFORMATION
  Report Type: 
  Country: None (occurrence: None)
  Receive Date: 20120210
  Receipt Date: 20120131
  Transmission Date: 20120608
  Serious: Yes (Hospitalization, Other)
  Sender: FDA-Public Use
  Company Number: JP-JNJFOC-20111004286

PATIENT
  Age: 81 Year
  Sex: Female
  Weight: 40 kg

DRUGS (12)
  1. GALANTAMINE HYDROBROMIDE [Suspect]
     Route: 048
     Dates: start: 20110513, end: 20110522
  2. RABEPRAZOLE SODIUM [Suspect]
     Indication: PRODUCT USED FOR UNKNOWN INDICATION
     Route: 048
     Dates: end: 20110908
  3. TAMBOCOR [Suspect]
     Indication: PRODUCT USED FOR UNKNOWN INDICATION
     Route: 065
     Dates: end: 20110908
  4. SYMMETREL [Suspect]
     Indication: PRODUCT USED FOR UNKNOWN INDICATION
     Route: 048
     Dates: end: 20110908
  5. GALANTAMINE HYDROBROMIDE [Suspect]
     Indication: DEMENTIA ALZHEIMER'S TYPE
     Route: 048
     Dates: start: 20110523, end: 20110908
  6. LORAZEPAM [Suspect]
     Indication: PRODUCT USED FOR UNKNOWN INDICATION
     Route: 048
  7. KETAS [Suspect]
     Indication: PRODUCT USED FOR UNKNOWN INDICATION
     Route: 065
     Dates: end: 20110908
  8. NORVASC [Suspect]
     Indication: PRODUCT USED FOR UNKNOWN INDICATION
     Route: 048
     Dates: end: 20110908
  9. DIART [Suspect]
     Indication: PRODUCT USED FOR UNKNOWN INDICATION
     Route: 048
     Dates: start: 20110531, end: 20110906
  10. DIART [Suspect]
     Route: 048
     Dates: start: 20110523, end: 20110530
  11. TOLTERODINE TARTRATE [Suspect]
     Indication: POLLAKIURIA
     Route: 048
     Dates: start: 20110809, end: 20110908
  12. SHIMBU-TO (CHINESE HERBAL MEDICINE) [Suspect]
     Indication: POLLAKIURIA
     Route: 065
     Dates: start: 20110809, end: 20110908

REACTIONS (18)
  - POLLAKIURIA [None]
  - PERSECUTORY DELUSION [None]
  - HALLUCINATION [None]
  - HALLUCINATION, AUDITORY [None]
  - VOMITING [None]
  - PANCREATITIS [None]
  - HEAD BANGING [None]
  - OEDEMA PERIPHERAL [None]
  - VISUAL ACUITY REDUCED [None]
  - CORNEAL OEDEMA [None]
  - HYPONATRAEMIA [None]
  - NAUSEA [None]
  - DIZZINESS [None]
  - HYPOCHLORAEMIA [None]
  - FALL [None]
  - NEUROLEPTIC MALIGNANT SYNDROME [None]
  - WEIGHT DECREASED [None]
  - FACE OEDEMA [None]
